FAERS Safety Report 7901519-9 (Version None)
Quarter: 2011Q4

REPORT INFORMATION
  Report Type: 
  Country: None (occurrence: None)
  Receive Date: 20111108
  Receipt Date: 20111004
  Transmission Date: 20120403
  Serious: Yes (Hospitalization)
  Sender: FDA-Public Use
  Company Number: US-ROCHE-1007843

PATIENT
  Age: 56 Year

DRUGS (3)
  1. CISPLATIN [Suspect]
     Indication: HEAD AND NECK CANCER
     Route: 042
     Dates: start: 20110623
  2. AVASTIN [Suspect]
     Indication: HEAD AND NECK CANCER
     Dosage: LAST DOSE PRIOR TO SAE: 23 JUNE 2011
     Route: 042
     Dates: start: 20110623
  3. FLUOROURACIL [Suspect]
     Indication: HEAD AND NECK CANCER
     Route: 042

REACTIONS (7)
  - DYSPHAGIA [None]
  - WEIGHT DECREASED [None]
  - HYPOKALAEMIA [None]
  - EMBOLISM [None]
  - DECREASED APPETITE [None]
  - HYPOMAGNESAEMIA [None]
  - ARTERIAL INJURY [None]
